FAERS Safety Report 8133287-2 (Version None)
Quarter: 2012Q1

REPORT INFORMATION
  Report Type: 
  Country: None (occurrence: None)
  Receive Date: 20120213
  Receipt Date: 20120206
  Transmission Date: 20120608
  Serious: Yes (Disabling, Other)
  Sender: FDA-Public Use
  Company Number: US-BAYER-2011-067958

PATIENT
  Age: 31 Year
  Sex: Female
  Weight: 52.154 kg

DRUGS (7)
  1. CALCIUM [Concomitant]
     Dosage: UNK
     Dates: start: 20040901
  2. ALLEGRA [Concomitant]
     Dosage: UNK
     Dates: start: 20040901
  3. BENADRYL [Concomitant]
     Indication: MULTIPLE ALLERGIES
     Dosage: UNK UNK, QON
     Route: 048
  4. YASMIN [Suspect]
     Indication: ACNE
     Dosage: UNK
     Dates: start: 20030101, end: 20040101
  5. VITAMIN E [Concomitant]
     Route: 048
  6. MULTI-VITAMINS [Concomitant]
     Dosage: UNK
     Dates: start: 20040901
  7. ALLEGRA [Concomitant]
     Indication: MULTIPLE ALLERGIES
     Dosage: UNK
     Route: 048
     Dates: start: 20040801

REACTIONS (10)
  - OPTIC NERVE INFARCTION [None]
  - BLINDNESS [None]
  - EMOTIONAL DISTRESS [None]
  - FEAR [None]
  - ANXIETY [None]
  - PAIN [None]
  - OPTIC ATROPHY [None]
  - PAPILLOEDEMA [None]
  - OPTIC DISC DRUSEN [None]
  - OPTIC NEUROPATHY [None]
